FAERS Safety Report 16745692 (Version 1)
Quarter: 2019Q3

REPORT INFORMATION
  Report Type: Spontaneous
  Country: CH (occurrence: CH)
  Receive Date: 20190827
  Receipt Date: 20190827
  Transmission Date: 20191005
  Serious: Yes (Hospitalization)
  Sender: FDA-Public Use
  Company Number: CH-ASTRAZENECA-2019SF19024

PATIENT
  Age: 69 Year
  Sex: Male

DRUGS (19)
  1. DAFALGAN [Concomitant]
     Active Substance: ACETAMINOPHEN
  2. TIZANIDINE. [Concomitant]
     Active Substance: TIZANIDINE
     Dates: start: 201906, end: 201906
  3. GABAPENTIN. [Suspect]
     Active Substance: GABAPENTIN
     Dosage: 300 MG, 2 DAYS
     Route: 048
     Dates: end: 20190110
  4. TOREM [Concomitant]
     Active Substance: TORSEMIDE
     Dosage: 50 MG AS NECESSARY
     Dates: start: 2018, end: 201803
  5. TOREM [Concomitant]
     Active Substance: TORSEMIDE
     Dates: start: 201803, end: 201907
  6. GABAPENTIN. [Suspect]
     Active Substance: GABAPENTIN
     Dosage: 300 MG, 3 DAYS
     Route: 048
     Dates: start: 20190111
  7. CIALIS [Suspect]
     Active Substance: TADALAFIL
     Dosage: 10 MG IN TOTAL
     Route: 048
     Dates: start: 20190620, end: 201907
  8. TOREM [Concomitant]
     Active Substance: TORSEMIDE
     Dates: start: 20190718
  9. ANXIOLIT [Concomitant]
     Active Substance: OXAZEPAM
     Dosage: AS NECESSARY
  10. ATORVASTATIN [Concomitant]
     Active Substance: ATORVASTATIN
     Route: 048
  11. PRADIF T [Concomitant]
     Active Substance: TAMSULOSIN HYDROCHLORIDE
  12. LAXOBERON [Concomitant]
     Active Substance: SODIUM PICOSULFATE
     Dosage: AS NECESSARY
  13. NEXIUM [Suspect]
     Active Substance: ESOMEPRAZOLE MAGNESIUM
     Route: 048
  14. ARANESP [Suspect]
     Active Substance: DARBEPOETIN ALFA
     Route: 058
  15. TOREM [Concomitant]
     Active Substance: TORSEMIDE
     Dates: start: 201801, end: 2018
  16. CLOPIDOGREL [Concomitant]
     Active Substance: CLOPIDOGREL BISULFATE
     Route: 048
  17. TRAJENTA [Concomitant]
     Active Substance: LINAGLIPTIN
     Dosage: 5.0MG UNKNOWN
  18. REQUIP [Concomitant]
     Active Substance: ROPINIROLE HYDROCHLORIDE
     Dosage: (0.5) DAILY
  19. ZOLDORM [Concomitant]
     Active Substance: ZOLPIDEM TARTRATE

REACTIONS (3)
  - Dyspnoea [Not Recovered/Not Resolved]
  - Fluid retention [Not Recovered/Not Resolved]
  - Oedema peripheral [Not Recovered/Not Resolved]

NARRATIVE: CASE EVENT DATE: 201907
